FAERS Safety Report 4559452-9 (Version None)
Quarter: 2005Q1

REPORT INFORMATION
  Report Type: 
  Country: None (occurrence: None)
  Receive Date: 20050119
  Receipt Date: 20050107
  Transmission Date: 20050727
  Serious: Yes (Hospitalization, Other)
  Sender: FDA-Public Use
  Company Number: DE-2005-000212

PATIENT
  Age: 50 Year
  Sex: Female

DRUGS (1)
  1. MIRENA [Suspect]
     Indication: MENORRHAGIA
     Dosage: 20 MICROG/DAY, CONT, INTRA-UTERINE
     Route: 015

REACTIONS (4)
  - AMENORRHOEA [None]
  - COLON CANCER [None]
  - ENDOMETRIAL CANCER METASTATIC [None]
  - GENITAL HAEMORRHAGE [None]
